FAERS Safety Report 6167843-8 (Version None)
Quarter: 2009Q2

REPORT INFORMATION
  Report Type: 
  Country: None (occurrence: None)
  Receive Date: 20090423
  Receipt Date: 20090407
  Transmission Date: 20091009
  Serious: Yes (Hospitalization)
  Sender: FDA-Public Use
  Company Number: GR-000095

PATIENT
  Age: 16 Year
  Sex: Male

DRUGS (1)
  1. ZOMACTON (SOMATROPIN) INJECTION 4 MG, INJECTION [Suspect]
     Indication: GROWTH HORMONE DEFICIENCY
     Dosage: SUBCUTANEOUS
     Route: 058
     Dates: start: 20061120

REACTIONS (2)
  - ARTHROPOD BITE [None]
  - SCLERODERMA [None]
